FAERS Safety Report 8367664-1 (Version None)
Quarter: 2012Q2

REPORT INFORMATION
  Report Type: 
  Country: None (occurrence: None)
  Receive Date: 20120517
  Receipt Date: 20100309
  Transmission Date: 20120825
  Serious: Yes (Death, Hospitalization)
  Sender: FDA-Public Use
  Company Number: PHHY2012AU015099

PATIENT
  Sex: Female

DRUGS (3)
  1. ZOLEDRONOC ACID [Suspect]
     Dosage: UNK
  2. ZOLEDRONOC ACID [Suspect]
     Dosage: UNK
  3. ZOLEDRONOC ACID [Suspect]
     Dosage: 5MG, FIRST INFUSION
     Route: 042
     Dates: start: 20090219

REACTIONS (2)
  - PNEUMONIA [None]
  - FALL [None]
